FAERS Safety Report 25350968 (Version 1)
Quarter: 2025Q2

REPORT INFORMATION
  Report Type: Spontaneous
  Country: GB (occurrence: GB)
  Receive Date: 20250523
  Receipt Date: 20250523
  Transmission Date: 20250717
  Serious: Yes (Hospitalization, Other)
  Sender: NOVO NORDISK
  Company Number: None

PATIENT
  Age: 16 Year
  Sex: Female
  Weight: 113 kg

DRUGS (1)
  1. WEGOVY [Suspect]
     Active Substance: SEMAGLUTIDE
     Indication: Overweight
     Dosage: 1.7 MG, QW
     Dates: start: 20240701

REACTIONS (6)
  - Cholestasis [Recovering/Resolving]
  - Cholecystitis acute [Unknown]
  - Splenomegaly [Unknown]
  - Pyrexia [Unknown]
  - Hepatic steatosis [Unknown]
  - Metabolic syndrome [Unknown]

NARRATIVE: CASE EVENT DATE: 20250508
